FAERS Safety Report 6726167-8 (Version None)
Quarter: 2010Q2

REPORT INFORMATION
  Report Type: 
  Country: None (occurrence: None)
  Receive Date: 20100514
  Receipt Date: 20100502
  Transmission Date: 20101027
  Serious: Yes (Hospitalization)
  Sender: FDA-Public Use
  Company Number: US-JNJFOC-20100502291

PATIENT
  Age: 8 Month
  Sex: Male
  Weight: 9.53 kg

DRUGS (2)
  1. CONCENTRATED TYLENOL INFANT DROPS [Suspect]
     Route: 048
  2. CONCENTRATED TYLENOL INFANT DROPS [Suspect]
     Indication: TEETHING
     Dosage: 1 DROPPER 1-2 TIMES PER DAY
     Route: 048

REACTIONS (3)
  - CONVULSION [None]
  - PRODUCT CONTAMINATION PHYSICAL [None]
  - PYREXIA [None]
